FAERS Safety Report 8837364 (Version 2)
Quarter: 2012Q4

REPORT INFORMATION
  Report Type: 
  Country: AU (occurrence: AU)
  Receive Date: 20121012
  Receipt Date: 20121015
  Transmission Date: 20130627
  Serious: Yes (Death, Hospitalization, Other)
  Sender: FDA-Public Use
  Company Number: PHHY2012AU090056

PATIENT
  Age: 52 Year
  Sex: Male

DRUGS (1)
  1. CLOZARIL [Suspect]
     Dosage: 400 mg
     Route: 048
     Dates: start: 19990430

REACTIONS (3)
  - Choking [Fatal]
  - Cardiac arrest [Fatal]
  - Electroencephalogram abnormal [Unknown]
